FAERS Safety Report 4913836-5 (Version None)
Quarter: 2006Q1

REPORT INFORMATION
  Report Type: 
  Country: None (occurrence: None)
  Receive Date: 20060216
  Receipt Date: 20041222
  Transmission Date: 20060701
  Serious: Yes (Other)
  Sender: FDA-Public Use
  Company Number: US-MERCK-0412USA02804

PATIENT
  Age: 56 Year
  Sex: Female
  Weight: 91 kg

DRUGS (8)
  1. VIOXX [Suspect]
     Indication: CEREBROVASCULAR ACCIDENT
     Route: 048
  2. VIOXX [Suspect]
     Route: 048
  3. VIOXX [Suspect]
     Indication: CARDIAC MURMUR
     Route: 048
  4. VIOXX [Suspect]
     Route: 048
  5. VIOXX [Suspect]
     Route: 048
  6. VIOXX [Suspect]
     Route: 048
  7. VIOXX [Suspect]
     Route: 048
  8. VIOXX [Suspect]
     Route: 048

REACTIONS (8)
  - CARDIAC DISORDER [None]
  - CARDIAC MURMUR [None]
  - CEREBROVASCULAR ACCIDENT [None]
  - NERVOUSNESS [None]
  - PALPITATIONS [None]
  - PERIPHERAL PARALYSIS [None]
  - TACHYCARDIA [None]
  - TRANSIENT ISCHAEMIC ATTACK [None]
